FAERS Safety Report 25775778 (Version 5)
Quarter: 2025Q4

REPORT INFORMATION
  Report Type: Spontaneous
  Country: US (occurrence: US)
  Receive Date: 20250909
  Receipt Date: 20251204
  Transmission Date: 20260118
  Serious: Yes (Other)
  Sender: ROCHE
  Company Number: US-ROCHE-10000379388

PATIENT
  Age: 46 Year
  Sex: Female

DRUGS (31)
  1. XOLAIR [Suspect]
     Active Substance: OMALIZUMAB
     Indication: Mast cell activation syndrome
     Route: 058
     Dates: start: 202208
  2. XOLAIR [Suspect]
     Active Substance: OMALIZUMAB
     Indication: Dyskinesia
     Route: 058
     Dates: start: 202504
  3. ALBUTEROL [Concomitant]
     Active Substance: ALBUTEROL
     Indication: Dyspnoea
     Dosage: INHALE 2 PUFF
  4. BUDESONIDE [Concomitant]
     Active Substance: BUDESONIDE
     Dosage: 1 CAPSULE
  5. COLCHICINE [Concomitant]
     Active Substance: COLCHICINE
     Route: 048
  6. CYCLOBENZAPRINE [Concomitant]
     Active Substance: CYCLOBENZAPRINE
     Route: 048
  7. CYCLOBENZAPRINE [Concomitant]
     Active Substance: CYCLOBENZAPRINE
     Route: 048
  8. DEXAMETHASONE [Concomitant]
     Active Substance: DEXAMETHASONE
     Dosage: 0.1 MG/ML
     Route: 048
  9. DICLOFENAC [Concomitant]
     Active Substance: DICLOFENAC
     Indication: Pain
     Dosage: 1% GOL
  10. EPINEPHRINE [Concomitant]
     Active Substance: EPINEPHRINE
     Dosage: AS NEEDED
  11. FAMITIDINE [Concomitant]
     Indication: Dyspepsia
  12. GABAPENTIN [Concomitant]
     Active Substance: GABAPENTIN
  13. IBUPROFEN [Concomitant]
     Active Substance: IBUPROFEN
     Indication: Pain
     Route: 048
  14. KETOROLAC [Concomitant]
     Active Substance: KETOROLAC TROMETHAMINE
     Indication: Pain
     Route: 048
  15. indocodain [Concomitant]
     Indication: Pain
  16. indocodain [Concomitant]
  17. indocodain [Concomitant]
  18. LORAZEPAM [Concomitant]
     Active Substance: LORAZEPAM
     Indication: Anxiety
     Route: 048
  19. METHOCARBAMOL [Concomitant]
     Active Substance: METHOCARBAMOL
     Route: 048
  20. METOCLOPRAMIDE [Concomitant]
     Active Substance: METOCLOPRAMIDE
     Route: 048
  21. ONDANSETRON [Concomitant]
     Active Substance: ONDANSETRON
     Route: 048
  22. PREDNISONE [Concomitant]
     Active Substance: PREDNISONE
     Route: 048
  23. PROPRANOLOL [Concomitant]
     Active Substance: PROPRANOLOL HYDROCHLORIDE
     Route: 048
  24. SIMETHICONE (DIMETHICONE) [Concomitant]
     Active Substance: DIMETHICONE
     Route: 048
  25. SUMATRIPTAP [Concomitant]
     Route: 058
  26. TZANIDINE [Concomitant]
     Route: 048
  27. TOPIRAMATE [Concomitant]
     Active Substance: TOPIRAMATE
     Route: 048
  28. TRAMADOL [Concomitant]
     Active Substance: TRAMADOL
     Route: 048
  29. trianrinolone [Concomitant]
  30. VYVANSE [Concomitant]
     Active Substance: LISDEXAMFETAMINE DIMESYLATE
  31. XARELTO [Concomitant]
     Active Substance: RIVAROXABAN

REACTIONS (6)
  - Anaphylactic reaction [Recovering/Resolving]
  - Mast cell activation syndrome [Recovering/Resolving]
  - Off label use [Unknown]
  - Non-Hodgkin^s lymphoma [Unknown]
  - Undifferentiated connective tissue disease [Unknown]
  - Immunodeficiency [Unknown]

NARRATIVE: CASE EVENT DATE: 20250610
